FAERS Safety Report 5250756-3 (Version None)
Quarter: 2007Q1

REPORT INFORMATION
  Report Type: 
  Country: None (occurrence: None)
  Receive Date: 20070223
  Receipt Date: 20070207
  Transmission Date: 20070707
  Serious: Yes (Death)
  Sender: FDA-Public Use
  Company Number: 2007JP000729

PATIENT
  Sex: 0

DRUGS (1)
  1. PROGRAF [Suspect]
     Dosage: IV DRIP
     Route: 041

REACTIONS (1)
  - THROMBOTIC MICROANGIOPATHY [None]
